FAERS Safety Report 4846903-5 (Version None)
Quarter: 2005Q4

REPORT INFORMATION
  Report Type: 
  Country: None (occurrence: None)
  Receive Date: 20051207
  Receipt Date: 20051129
  Transmission Date: 20060501
  Serious: Yes (Hospitalization)
  Sender: FDA-Public Use
  Company Number: US-AVENTIS-200520515GDDC

PATIENT
  Age: 52 Year
  Sex: Male
  Weight: 74.4 kg

DRUGS (9)
  1. DOCETAXEL [Suspect]
     Indication: SARCOMA
     Route: 042
     Dates: start: 20051025, end: 20051025
  2. GEMCITABINE [Suspect]
     Indication: SARCOMA
     Dosage: DOSE: 900 MG/M2 ON DAY 1 AND DAY 8 EVERY 3 WEEKS
     Route: 042
     Dates: start: 20051018, end: 20051025
  3. DIFLUCAN [Concomitant]
  4. SENEKOT-S [Concomitant]
  5. REGLAN [Concomitant]
  6. ZOFRAN [Concomitant]
  7. OXYCODONE [Concomitant]
  8. PEPCID [Concomitant]
  9. LOTENSIN HCT [Concomitant]

REACTIONS (15)
  - ASTHENIA [None]
  - BRONCHOPULMONARY ASPERGILLOSIS [None]
  - DEHYDRATION [None]
  - HAEMOGLOBIN DECREASED [None]
  - MUCOSAL INFLAMMATION [None]
  - MYALGIA [None]
  - NAUSEA [None]
  - NEUTROPHIL COUNT DECREASED [None]
  - ORTHOSTATIC HYPOTENSION [None]
  - PAIN [None]
  - PANCYTOPENIA [None]
  - PLATELET COUNT DECREASED [None]
  - PRODUCTIVE COUGH [None]
  - PYREXIA [None]
  - VOMITING [None]
